FAERS Safety Report 8012879-5 (Version None)
Quarter: 2011Q4

REPORT INFORMATION
  Report Type: 
  Country: None (occurrence: None)
  Receive Date: 20111229
  Receipt Date: 20111220
  Transmission Date: 20120403
  Serious: Yes (Other)
  Sender: FDA-Public Use
  Company Number: PE-JNJFOC-20111209175

PATIENT
  Age: 42 Year

DRUGS (1)
  1. REMICADE [Suspect]
     Indication: PSORIASIS
     Dosage: DOSAGES: 2
     Route: 042

REACTIONS (1)
  - PITYRIASIS ROSEA [None]
